FAERS Safety Report 4324637-3 (Version None)
Quarter: 2004Q1

REPORT INFORMATION
  Report Type: 
  Country: None (occurrence: None)
  Receive Date: 20040322
  Receipt Date: 20040308
  Transmission Date: 20041129
  Serious: Yes (Death)
  Sender: FDA-Public Use
  Company Number: BR-JNJFOC-20040301582

PATIENT
  Age: 46 Year
  Sex: Male

DRUGS (1)
  1. LEUSTATIN [Suspect]
     Indication: CASTLEMAN'S DISEASE
     Dosage: 0.1 MG/KG, 1 IN 1 DAY, INJECTION
     Dates: start: 19990401, end: 19990701

REACTIONS (4)
  - DIFFUSE LARGE B-CELL LYMPHOMA STAGE III [None]
  - MALIGNANT NEOPLASM PROGRESSION [None]
  - NON-HODGKIN'S LYMPHOMA [None]
  - SEPSIS [None]
